FAERS Safety Report 6474328-8 (Version None)
Quarter: 2009Q4

REPORT INFORMATION
  Report Type: 
  Country: None (occurrence: None)
  Receive Date: 20091204
  Receipt Date: 20091126
  Transmission Date: 20100525
  Serious: Yes (Hospitalization)
  Sender: FDA-Public Use
  Company Number: GXKR2009US12687

PATIENT
  Age: 77 Year
  Sex: Male

DRUGS (2)
  1. NITROFURANTOIN (NGX) [Suspect]
     Indication: URINARY TRACT INFECTION
     Dosage: 100 MG, DAILY
     Route: 065
     Dates: start: 20080901
  2. NITROFURANTOIN (NGX) [Suspect]
     Dosage: 100 MG, DAILY
     Dates: start: 20081013

REACTIONS (11)
  - ABDOMINAL PAIN [None]
  - CHILLS [None]
  - CHROMATURIA [None]
  - FATIGUE [None]
  - HYPERHIDROSIS [None]
  - LEUKOCYTOSIS [None]
  - MALAISE [None]
  - NAUSEA [None]
  - PYREXIA [None]
  - SYSTEMIC INFLAMMATORY RESPONSE SYNDROME [None]
  - VOMITING [None]
